FAERS Safety Report 24459375 (Version 1)
Quarter: 2024Q4

REPORT INFORMATION
  Report Type: Report from Study
  Country: ZA (occurrence: ZA)
  Receive Date: 20241018
  Receipt Date: 20241018
  Transmission Date: 20250115
  Serious: No
  Sender: ROCHE
  Company Number: ZA-ROCHE-3538850

PATIENT
  Age: 50 Year
  Sex: Female
  Weight: 98.0 kg

DRUGS (6)
  1. RITUXIMAB [Suspect]
     Active Substance: RITUXIMAB
     Indication: Rheumatoid arthritis
     Route: 041
     Dates: start: 20220513
  2. INDAPAMIDE [Concomitant]
     Active Substance: INDAPAMIDE
  3. PERINDOPRIL [Concomitant]
     Active Substance: PERINDOPRIL
  4. FLUOXETINE [Concomitant]
     Active Substance: FLUOXETINE HYDROCHLORIDE
  5. NEXIUM [Concomitant]
     Active Substance: ESOMEPRAZOLE MAGNESIUM
  6. BUDESONIDE\FORMOTEROL [Concomitant]
     Active Substance: BUDESONIDE\FORMOTEROL

REACTIONS (2)
  - Platelet count increased [Unknown]
  - Aspartate aminotransferase increased [Unknown]

NARRATIVE: CASE EVENT DATE: 20240328
